FAERS Safety Report 14836201 (Version 4)
Quarter: 2019Q1

REPORT INFORMATION
  Report Type: Spontaneous
  Country: US (occurrence: US)
  Receive Date: 20180502
  Receipt Date: 20190109
  Transmission Date: 20190417
  Serious: Yes (Other)
  Sender: FDA-Public Use
  Company Number: US-PFIZER INC-2018175671

PATIENT
  Age: 75 Year
  Sex: Female
  Weight: 61.69 kg

DRUGS (7)
  1. LIPITOR [Suspect]
     Active Substance: ATORVASTATIN CALCIUM
     Indication: BLOOD CHOLESTEROL ABNORMAL
     Dosage: 80 MG, UNK
  2. LIPITOR [Suspect]
     Active Substance: ATORVASTATIN CALCIUM
     Dosage: 60 MG, UNK (TAKING A 40MG AND 20MG PILL)
     Dates: start: 20180425
  3. LIPITOR [Suspect]
     Active Substance: ATORVASTATIN CALCIUM
     Dosage: 40 MG, ONCE PER DAY, 1 AT NIGHT
     Route: 048
     Dates: start: 20150208
  4. LIPITOR [Suspect]
     Active Substance: ATORVASTATIN CALCIUM
     Dosage: 60 MG, UNK (TAKING A 40MG AND 20MG PILL)
     Dates: start: 20180425
  5. METOPROLOL. [Concomitant]
     Active Substance: METOPROLOL
     Indication: HEART RATE ABNORMAL
     Dosage: 25 MG TABLET, HALF IN THE MORNING , HALF AT NIGHT, AFTER SUPPER
     Route: 048
     Dates: start: 201502
  6. LIPITOR [Suspect]
     Active Substance: ATORVASTATIN CALCIUM
     Dosage: 40 MG, UNK
  7. PLAVIX [Concomitant]
     Active Substance: CLOPIDOGREL BISULFATE
     Indication: STENT PLACEMENT
     Dosage: 75 MG, 1X/DAY(1 IN THE MORNING AFTER BREAKFAST)
     Route: 048
     Dates: start: 201502

REACTIONS (6)
  - Wrong technique in product usage process [Unknown]
  - Drug ineffective [Unknown]
  - Choking [Unknown]
  - Product use complaint [Unknown]
  - Prescribed overdose [Not Recovered/Not Resolved]
  - Product size issue [Unknown]

NARRATIVE: CASE EVENT DATE: 20180425
